FAERS Safety Report 17930997 (Version 1)
Quarter: 2020Q2

REPORT INFORMATION
  Report Type: Spontaneous
  Country: GB (occurrence: GB)
  Receive Date: 20200623
  Receipt Date: 20200623
  Transmission Date: 20200714
  Serious: Yes (Disabling, Other)
  Sender: FDA-Public Use
  Company Number: GB-FRESENIUS KABI-FK202006278

PATIENT
  Age: 17 Year
  Sex: Female

DRUGS (3)
  1. BUPIVACAINE (MANUFACTURER UNKNOWN) [Suspect]
     Active Substance: BUPIVACAINE
     Indication: NERVE BLOCK
     Route: 008
  2. MIDAZOLAM. [Concomitant]
     Active Substance: MIDAZOLAM
     Indication: SEDATIVE THERAPY
     Dosage: UNKNOWN
     Route: 065
  3. SALICYLIC ACID/TRIAMCINOLONE ACETONIDE [Suspect]
     Active Substance: SALICYLIC ACID\TRIAMCINOLONE ACETONIDE
     Indication: THERAPEUTIC PROCEDURE
     Dosage: UNKNOWN
     Route: 008

REACTIONS (2)
  - Incorrect route of product administration [Recovered/Resolved with Sequelae]
  - Spinal cord infarction [Recovered/Resolved with Sequelae]
